APPROVED DRUG PRODUCT: MIDODRINE HYDROCHLORIDE
Active Ingredient: MIDODRINE HYDROCHLORIDE
Strength: 5MG
Dosage Form/Route: TABLET;ORAL
Application: A217271 | Product #002 | TE Code: AB
Applicant: MANKIND PHARMA LTD
Approved: Nov 1, 2023 | RLD: No | RS: No | Type: RX